FAERS Safety Report 6523136-8 (Version None)
Quarter: 2009Q4

REPORT INFORMATION
  Report Type: 
  Country: None (occurrence: None)
  Receive Date: 20091222
  Receipt Date: 20091214
  Transmission Date: 20100525
  Serious: Yes (Other)
  Sender: FDA-Public Use
  Company Number: 2009SP041194

PATIENT
  Age: 48 Year
  Sex: Female
  Weight: 70.8 kg

DRUGS (4)
  1. TEMODAL [Suspect]
     Indication: BREAST CANCER METASTATIC
     Dosage: 120 MG, QD, PO
     Route: 048
     Dates: start: 20090115, end: 20090120
  2. KEPRA [Concomitant]
  3. SOLU-MEDROL [Concomitant]
  4. MANNITOL [Concomitant]

REACTIONS (6)
  - DISEASE PROGRESSION [None]
  - FACIAL PALSY [None]
  - GASTRITIS [None]
  - HYPERTENSION [None]
  - LOSS OF CONSCIOUSNESS [None]
  - VARICOSE VEIN [None]
